FAERS Safety Report 26114102 (Version 1)
Quarter: 2025Q4

REPORT INFORMATION
  Report Type: Report from Study
  Country: US (occurrence: None)
  Receive Date: 20251202
  Receipt Date: 20251202
  Transmission Date: 20260117
  Serious: Yes (Hospitalization, Other)
  Sender: UCB
  Company Number: US-UCBSA-2025064543

PATIENT
  Age: 28 Year
  Weight: 63.5 kg

DRUGS (2)
  1. CERTOLIZUMAB PEGOL [Suspect]
     Active Substance: CERTOLIZUMAB PEGOL
     Indication: Ankylosing spondylitis
     Dosage: 400 MILLIGRAM, EV 4 WEEKS
  2. CERTOLIZUMAB PEGOL [Suspect]
     Active Substance: CERTOLIZUMAB PEGOL
     Dosage: UNK UNK, EV 2 WEEKS(QOW)

REACTIONS (9)
  - Complication of pregnancy [Unknown]
  - Seizure [Unknown]
  - Pre-eclampsia [Unknown]
  - Caesarean section [Unknown]
  - Premature delivery [Unknown]
  - Lactation puerperal increased [Unknown]
  - Mastitis [Recovered/Resolved]
  - Maternal exposure during pregnancy [Unknown]
  - Maternal exposure during breast feeding [Unknown]
